FAERS Safety Report 11465796 (Version 1)
Quarter: 2015Q3

REPORT INFORMATION
  Report Type: Spontaneous
  Country: TR (occurrence: TR)
  Receive Date: 20150907
  Receipt Date: 20150907
  Transmission Date: 20151125
  Serious: Yes (Other)
  Sender: FDA-Public Use
  Company Number: TR-ABBVIE-15P-161-1456658-00

PATIENT
  Age: 40 Year
  Sex: Female
  Weight: 75 kg

DRUGS (1)
  1. HUMIRA [Suspect]
     Active Substance: ADALIMUMAB
     Indication: CROHN^S DISEASE
     Route: 058
     Dates: start: 201404

REACTIONS (1)
  - Contusion [Not Recovered/Not Resolved]

NARRATIVE: CASE EVENT DATE: 201508
